FAERS Safety Report 17411461 (Version 2)
Quarter: 2021Q1

REPORT INFORMATION
  Report Type: Report from Study
  Country: US (occurrence: US)
  Receive Date: 20200212
  Receipt Date: 20210118
  Transmission Date: 20210419
  Serious: Yes (Hospitalization, Other)
  Sender: FDA-Public Use
  Company Number: US-AUROBINDO-AUR-APL-2019-101185

PATIENT
  Age: 64 Year
  Sex: Female

DRUGS (5)
  1. FLUVOXAMINE [Interacting]
     Active Substance: FLUVOXAMINE
     Indication: PSYCHOTHERAPY
     Dosage: UNK
     Route: 065
  2. ACETYLCYSTEINE. [Interacting]
     Active Substance: ACETYLCYSTEINE
     Indication: PSYCHOTHERAPY
     Dosage: UNK
     Route: 065
  3. KETAMINE [Interacting]
     Active Substance: KETAMINE
     Indication: PRODUCT USED FOR UNKNOWN INDICATION
     Dosage: 0.5 MG/KG INFUSED OVER 40 MINUTES
     Route: 041
  4. ALPRAZOLAM. [Suspect]
     Active Substance: ALPRAZOLAM
     Indication: PSYCHOTHERAPY
     Dosage: UNK
     Route: 065
  5. RILUZOLE. [Interacting]
     Active Substance: RILUZOLE
     Indication: PSYCHOTHERAPY
     Dosage: UNK
     Route: 065

REACTIONS (10)
  - Poor quality sleep [Unknown]
  - Condition aggravated [Unknown]
  - Anxiety [Recovered/Resolved]
  - Depersonalisation/derealisation disorder [Unknown]
  - Paraesthesia oral [Unknown]
  - Paraesthesia [Unknown]
  - Nausea [Unknown]
  - Drug interaction [Recovered/Resolved]
  - Suicidal ideation [Recovered/Resolved]
  - Dysphoria [Recovered/Resolved]
